FAERS Safety Report 6951838-8 (Version None)
Quarter: 2010Q3

REPORT INFORMATION
  Report Type: 
  Country: None (occurrence: None)
  Receive Date: 20100829
  Receipt Date: 20100412
  Transmission Date: 20110219
  Serious: No
  Sender: FDA-Public Use
  Company Number: US-ABBOTT-10P-163-0639018-00

PATIENT
  Sex: Male
  Weight: 70.37 kg

DRUGS (4)
  1. NIASPAN [Suspect]
     Indication: HIGH DENSITY LIPOPROTEIN DECREASED
     Route: 048
     Dates: start: 20091001, end: 20100101
  2. ALLEGRA [Concomitant]
     Indication: SEASONAL ALLERGY
  3. PROSCAR [Concomitant]
     Indication: PROSTATOMEGALY
     Route: 048
  4. DOXAZOSIN MESYLATE [Concomitant]
     Indication: PROSTATOMEGALY
     Route: 048

REACTIONS (2)
  - CONTUSION [None]
  - PAIN [None]
